FAERS Safety Report 8135937-3 (Version None)
Quarter: 2012Q1

REPORT INFORMATION
  Report Type: 
  Country: None (occurrence: None)
  Receive Date: 20120214
  Receipt Date: 20120209
  Transmission Date: 20120608
  Serious: Yes (Other)
  Sender: FDA-Public Use
  Company Number: JP-PFIZER INC-2012036343

PATIENT
  Age: 84 Year
  Sex: Female

DRUGS (1)
  1. LYRICA [Suspect]
     Dosage: 300 MG DAILY
     Route: 048
     Dates: start: 20120206

REACTIONS (6)
  - HEAD TITUBATION [None]
  - SOMNOLENCE [None]
  - DIZZINESS [None]
  - SPEECH DISORDER [None]
  - INCREASED APPETITE [None]
  - ASTHENIA [None]
